FAERS Safety Report 6253072-6 (Version None)
Quarter: 2009Q3

REPORT INFORMATION
  Report Type: 
  Country: None (occurrence: None)
  Receive Date: 20090701
  Receipt Date: 20090622
  Transmission Date: 20100115
  Serious: Yes (Hospitalization, Other)
  Sender: FDA-Public Use
  Company Number: PHHO2009JP01243

PATIENT
  Sex: Female
  Weight: 50 kg

DRUGS (11)
  1. ICL670A ICL+DISTAB [Suspect]
     Indication: HAEMOSIDEROSIS
     Dosage: 20 MG/KG
     Route: 048
     Dates: start: 20080716
  2. ICL670A ICL+DISTAB [Suspect]
     Dosage: 20 MG/KG DAILY
     Route: 048
     Dates: start: 20080717, end: 20080813
  3. ICL670A ICL+DISTAB [Suspect]
     Dosage: 10 MG/KG DAILY
     Route: 048
     Dates: start: 20080814, end: 20080924
  4. ICL670A ICL+DISTAB [Suspect]
     Dosage: 20 MG/KG DAILY
     Route: 048
     Dates: start: 20080925, end: 20081112
  5. ICL670A ICL+DISTAB [Suspect]
     Dosage: 10 MG/KG DAILY
     Route: 048
     Dates: start: 20081113, end: 20090118
  6. ICL670A ICL+DISTAB [Suspect]
     Dosage: NO TREATMENT
     Route: 048
     Dates: start: 20090119, end: 20090316
  7. ICL670A ICL+DISTAB [Suspect]
     Dosage: 20 MG/KG DAILY
     Dates: start: 20090317, end: 20090602
  8. ICL670A ICL+DISTAB [Suspect]
     Dosage: NO TREATMENT
     Dates: start: 20090603, end: 20090610
  9. ICL670A ICL+DISTAB [Suspect]
     Dosage: 20 MG/KG
     Dates: start: 20090611, end: 20090619
  10. ICL670A ICL+DISTAB [Suspect]
     Dosage: NO TREATMENT
     Dates: start: 20090620
  11. NEORAL [Suspect]
     Indication: MYELODYSPLASTIC SYNDROME
     Dosage: 100 MG
     Route: 048
     Dates: start: 20080910, end: 20090118

REACTIONS (26)
  - ALANINE AMINOTRANSFERASE INCREASED [None]
  - ASPARTATE AMINOTRANSFERASE INCREASED [None]
  - BLOOD CREATININE INCREASED [None]
  - C-REACTIVE PROTEIN INCREASED [None]
  - CANDIDIASIS [None]
  - CELLULITIS [None]
  - COUGH [None]
  - DEBRIDEMENT [None]
  - DECREASED APPETITE [None]
  - DEHYDRATION [None]
  - HAEMATOMA [None]
  - HAEMOPTYSIS [None]
  - HEPATIC FUNCTION ABNORMAL [None]
  - INFLAMMATION [None]
  - LUNG DISORDER [None]
  - LUNG INFILTRATION [None]
  - MALAISE [None]
  - ORGANISING PNEUMONIA [None]
  - PAIN IN EXTREMITY [None]
  - PLEURAL EFFUSION [None]
  - PNEUMONIA [None]
  - PULMONARY MASS [None]
  - PYODERMA GANGRENOSUM [None]
  - PYREXIA [None]
  - SKIN ULCER [None]
  - STAPHYLOCOCCAL INFECTION [None]
